FAERS Safety Report 18806243 (Version 3)
Quarter: 2023Q4

REPORT INFORMATION
  Report Type: Spontaneous
  Country: US (occurrence: US)
  Receive Date: 20210128
  Receipt Date: 20231103
  Transmission Date: 20240110
  Serious: Yes (Hospitalization, Other)
  Sender: FDA-Public Use
  Company Number: US-GILEAD-2021-0513421

PATIENT
  Age: 59 Year
  Sex: Male
  Weight: 83.9 kg

DRUGS (53)
  1. ATRIPLA [Suspect]
     Active Substance: EFAVIRENZ\EMTRICITABINE\TENOFOVIR DISOPROXIL FUMARATE
     Indication: HIV infection
     Dosage: UNK
     Route: 048
     Dates: start: 2006
  2. ATRIPLA [Suspect]
     Active Substance: EFAVIRENZ\EMTRICITABINE\TENOFOVIR DISOPROXIL FUMARATE
     Dosage: UNK
     Route: 048
     Dates: start: 20130128, end: 20150305
  3. ATRIPLA [Suspect]
     Active Substance: EFAVIRENZ\EMTRICITABINE\TENOFOVIR DISOPROXIL FUMARATE
     Dosage: UNK
     Route: 048
     Dates: start: 201504, end: 201808
  4. DESCOVY [Concomitant]
     Active Substance: EMTRICITABINE\TENOFOVIR ALAFENAMIDE FUMARATE
  5. TIVICAY [Concomitant]
     Active Substance: DOLUTEGRAVIR SODIUM
  6. ACETAMINOPHEN [Concomitant]
     Active Substance: ACETAMINOPHEN
  7. AFLURIA NOS [Concomitant]
     Active Substance: INFLUENZA VIRUS VACCINE TRIVALENT TYPE A+B AFLURIA
  8. ALBUTEROL [Concomitant]
     Active Substance: ALBUTEROL
  9. AZITHROMYCIN [Concomitant]
     Active Substance: AZITHROMYCIN
  10. BUPROPION [Concomitant]
     Active Substance: BUPROPION
  11. CEFUROXIME [Concomitant]
     Active Substance: CEFUROXIME
  12. CLINDAMYCIN [Concomitant]
     Active Substance: CLINDAMYCIN
  13. CRESTOR [Concomitant]
     Active Substance: ROSUVASTATIN CALCIUM
  14. CYCLOBENZAPRINE [Concomitant]
     Active Substance: CYCLOBENZAPRINE
  15. FENOFIBRATE [Concomitant]
     Active Substance: FENOFIBRATE
  16. FLUARIX NOS [Concomitant]
     Active Substance: INFLUENZA VIRUS VACCINE
  17. FLUCELVAX NOS [Concomitant]
     Active Substance: INFLUENZA A VIRUS A/BRISBANE/10/2010 (H1N1) ANTIGEN (MDCK CELL DERIVED, PROPIOLACTONE INACTIVATED)\I
  18. FLUOXETINE [Concomitant]
     Active Substance: FLUOXETINE HYDROCHLORIDE
  19. FLUTICASONE [Concomitant]
     Active Substance: FLUTICASONE
  20. FLUCONAZOLE [Concomitant]
     Active Substance: FLUCONAZOLE
  21. GAVILYTE - C [Concomitant]
     Active Substance: POLYETHYLENE GLYCOL 3350\POTASSIUM CHLORIDE\SODIUM BICARBONATE\SODIUM CHLORIDE\SODIUM SULFATE
  22. GLYBURIDE [Concomitant]
     Active Substance: GLYBURIDE
  23. HYDROCHLOROTHIAZIDE [Concomitant]
     Active Substance: HYDROCHLOROTHIAZIDE
  24. IBUPROFEN [Concomitant]
     Active Substance: IBUPROFEN
  25. IRON [Concomitant]
     Active Substance: IRON
  26. LEVOCETIRIZINE HYDROCHLORIDE [Concomitant]
     Active Substance: LEVOCETIRIZINE HYDROCHLORIDE
  27. LEVOFLOXACIN [Concomitant]
     Active Substance: LEVOFLOXACIN
  28. LISINOPRIL [Concomitant]
     Active Substance: LISINOPRIL
  29. LOVAZA [Concomitant]
     Active Substance: OMEGA-3-ACID ETHYL ESTERS
  30. ASPIRIN [Concomitant]
     Active Substance: ASPIRIN
  31. LYRICA [Concomitant]
     Active Substance: PREGABALIN
  32. MECLIZINE HYDROCHLORIDE [Concomitant]
     Active Substance: MECLIZINE HYDROCHLORIDE
  33. METHYLPREDNISOLONE [Concomitant]
     Active Substance: METHYLPREDNISOLONE
  34. MIRTAZAPINE [Concomitant]
     Active Substance: MIRTAZAPINE
  35. MORPHINE [Concomitant]
     Active Substance: MORPHINE
  36. NOVOLOG [Concomitant]
     Active Substance: INSULIN ASPART
  37. OMEGA 100 [Concomitant]
  38. OMEPRAZOLE [Concomitant]
     Active Substance: OMEPRAZOLE
  39. DEXTROSE [Concomitant]
     Active Substance: DEXTROSE\DEXTROSE MONOHYDRATE
  40. OSELTAMIVIR [Concomitant]
     Active Substance: OSELTAMIVIR
  41. OXYCODONE [Concomitant]
     Active Substance: OXYCODONE
  42. POTASSIUM [Concomitant]
     Active Substance: POTASSIUM
  43. QUETIAPINE [Concomitant]
     Active Substance: QUETIAPINE
  44. RAMIPRIL [Concomitant]
     Active Substance: RAMIPRIL
  45. ROSUVASTATIN [Concomitant]
     Active Substance: ROSUVASTATIN
  46. SULFAMETHOXAZOLE [Concomitant]
     Active Substance: SULFAMETHOXAZOLE
  47. SYMBICORT [Concomitant]
     Active Substance: BUDESONIDE\FORMOTEROL FUMARATE DIHYDRATE
  48. TIZANIDINE [Concomitant]
     Active Substance: TIZANIDINE
  49. TRESIBA [Concomitant]
     Active Substance: INSULIN DEGLUDEC
  50. TRIAMCINOLONE [Concomitant]
     Active Substance: TRIAMCINOLONE
  51. VENTOLIN [Concomitant]
     Active Substance: ALBUTEROL SULFATE
  52. CHOLECALCIFEROL [Concomitant]
     Active Substance: CHOLECALCIFEROL
  53. WELCHOL [Concomitant]
     Active Substance: COLESEVELAM HYDROCHLORIDE

REACTIONS (7)
  - Chronic kidney disease [Not Recovered/Not Resolved]
  - Renal impairment [Unknown]
  - Pain [Not Recovered/Not Resolved]
  - Emotional distress [Not Recovered/Not Resolved]
  - Anxiety [Not Recovered/Not Resolved]
  - Anhedonia [Not Recovered/Not Resolved]
  - Depression [Not Recovered/Not Resolved]

NARRATIVE: CASE EVENT DATE: 20180801
